FAERS Safety Report 19942299 (Version 1)
Quarter: 2021Q4

REPORT INFORMATION
  Report Type: Spontaneous
  Country: US (occurrence: US)
  Receive Date: 20211011
  Receipt Date: 20211011
  Transmission Date: 20220303
  Serious: Yes (Death)
  Sender: FDA-Public Use
  Company Number: None

PATIENT
  Age: 55 Year
  Sex: Male
  Weight: 71.3 kg

DRUGS (2)
  1. TOCILIZUMAB [Suspect]
     Active Substance: TOCILIZUMAB
     Indication: COVID-19 pneumonia
     Dosage: ?          OTHER FREQUENCY:ONCE;
     Route: 042
     Dates: start: 20210722, end: 20210722
  2. DEXAMETHASONE [Concomitant]
     Active Substance: DEXAMETHASONE
     Dates: start: 20210719, end: 20210811

REACTIONS (8)
  - Pneumothorax [None]
  - Mycobacterium fortuitum infection [None]
  - Bacteraemia [None]
  - Pneumonia pseudomonal [None]
  - Hypertension [None]
  - Bronchopleural fistula [None]
  - Empyema [None]
  - Palliative care [None]

NARRATIVE: CASE EVENT DATE: 20210722
